FAERS Safety Report 5076602-9 (Version None)
Quarter: 2006Q3

REPORT INFORMATION
  Report Type: 
  Country: None (occurrence: None)
  Receive Date: 20060807
  Receipt Date: 20060724
  Transmission Date: 20061208
  Serious: Yes (Hospitalization)
  Sender: FDA-Public Use
  Company Number: 2006084581

PATIENT
  Age: 73 Year
  Sex: Female
  Weight: 65 kg

DRUGS (4)
  1. LYRICA [Suspect]
     Indication: DRUG USE FOR UNKNOWN INDICATION
     Dosage: 150 MG (75 MG, 2 IN 1 D)
  2. LEXOMIL             (BROMAZEPAM) [Suspect]
     Indication: DEPRESSION
     Dosage: (3 IN 1 D), ORAL
     Route: 048
     Dates: start: 20060101
  3. NEURONTIN [Concomitant]
  4. EFFERALGAN CODEINE               (CODEINE PHOSPHATE, PARACETAMOL) [Concomitant]

REACTIONS (4)
  - DRUG INTERACTION [None]
  - FALL [None]
  - MALAISE [None]
  - SOMNOLENCE [None]
